FAERS Safety Report 14821268 (Version 1)
Quarter: 2018Q2

REPORT INFORMATION
  Report Type: Spontaneous
  Country: FR (occurrence: FR)
  Receive Date: 20180427
  Receipt Date: 20180427
  Transmission Date: 20180711
  Serious: Yes (Congenital Anomaly, Other)
  Sender: FDA-Public Use
  Company Number: FR-PFIZER INC-2017335561

PATIENT
  Age: 27 Year
  Sex: Female

DRUGS (4)
  1. PLAVIX [Suspect]
     Active Substance: CLOPIDOGREL BISULFATE
     Dosage: UNK
     Route: 048
  2. TAHOR [Suspect]
     Active Substance: ATORVASTATIN CALCIUM
     Dosage: UNK
     Route: 048
  3. LEXOMIL [Suspect]
     Active Substance: BROMAZEPAM
     Dosage: 1 TO 2 BOXES, DAILY
     Route: 048
  4. IKOREL [Suspect]
     Active Substance: NICORANDIL
     Dosage: UNK
     Route: 048

REACTIONS (1)
  - Drug dependence [Unknown]
